FAERS Safety Report 11189721 (Version 1)
Quarter: 2015Q2

REPORT INFORMATION
  Report Type: Spontaneous
  Country: US (occurrence: None)
  Receive Date: 20150612
  Receipt Date: 20150612
  Transmission Date: 20150821
  Serious: No
  Sender: FDA-Public Use
  Company Number: None

PATIENT
  Age: 58 Year
  Sex: Female
  Weight: 108.86 kg

DRUGS (8)
  1. FEXOFENIDINE [Concomitant]
  2. RANITIDINE [Concomitant]
     Active Substance: RANITIDINE\RANITIDINE HYDROCHLORIDE
  3. CALCIUM SUPPLEMENT [Concomitant]
     Active Substance: CALCIUM
  4. MULTIVITAMIN [Concomitant]
     Active Substance: VITAMINS
  5. ASPIRIN. [Concomitant]
     Active Substance: ASPIRIN
  6. HYDROXYZINE PAMOATE. [Suspect]
     Active Substance: HYDROXYZINE PAMOATE
     Indication: ANXIETY
     Dosage: TAKEN BY MOUTH
     Dates: start: 20150305, end: 20150331
  7. FLUOXETINE [Concomitant]
     Active Substance: FLUOXETINE\FLUOXETINE HYDROCHLORIDE
  8. ACETAMINOPHEN. [Concomitant]
     Active Substance: ACETAMINOPHEN

REACTIONS (5)
  - Malaise [None]
  - Lethargy [None]
  - Product substitution issue [None]
  - Product contamination [None]
  - Product quality issue [None]

NARRATIVE: CASE EVENT DATE: 20150315
